FAERS Safety Report 8458690-2 (Version None)
Quarter: 2012Q2

REPORT INFORMATION
  Report Type: 
  Country: None (occurrence: None)
  Receive Date: 20120615
  Receipt Date: 20120604
  Transmission Date: 20120825
  Serious: Yes (Hospitalization, Other)
  Sender: FDA-Public Use
  Company Number: US-CYPR-2011-000107

PATIENT
  Sex: Male
  Weight: 67.586 kg

DRUGS (14)
  1. AMLODIPINE [Concomitant]
  2. LIPITOR [Concomitant]
  3. PRAVASTATIN [Concomitant]
  4. ACIPHEX [Concomitant]
  5. FUROSEMIDE [Concomitant]
  6. IMDUR [Concomitant]
  7. CYPHER STENT [Concomitant]
  8. JANUVIA [Concomitant]
  9. GLIMEPIRIDE [Concomitant]
  10. CLOPIDOGREL [Suspect]
     Indication: ANTIPLATELET THERAPY
     Dosage: (75 MG QD ORAL), (75 MG QD ORAL)
     Route: 048
     Dates: start: 20110920
  11. CLOPIDOGREL [Suspect]
     Indication: ANTIPLATELET THERAPY
     Dosage: (75 MG QD ORAL), (75 MG QD ORAL)
     Route: 048
     Dates: start: 20110413
  12. METOPROLOL TARTRATE [Concomitant]
  13. ASPIRIN [Suspect]
     Indication: CORONARY ARTERY DISEASE
     Dosage: (325 MG QD ORAL), (325 MG QD ORAL)
     Route: 048
     Dates: start: 20110919
  14. ASPIRIN [Suspect]
     Indication: CORONARY ARTERY DISEASE
     Dosage: (325 MG QD ORAL), (325 MG QD ORAL)
     Route: 048
     Dates: start: 20040505, end: 20110901

REACTIONS (3)
  - IN-STENT CORONARY ARTERY RESTENOSIS [None]
  - RENAL ARTERY STENOSIS [None]
  - MYOCARDIAL ISCHAEMIA [None]
